FAERS Safety Report 7821194-1 (Version None)
Quarter: 2011Q4

REPORT INFORMATION
  Report Type: 
  Country: None (occurrence: None)
  Receive Date: 20111018
  Receipt Date: 20111012
  Transmission Date: 20120403
  Serious: Yes (Other)
  Sender: FDA-Public Use
  Company Number: US-ROXANE LABORATORIES, INC.-2011-RO-01456RO

PATIENT
  Age: 61 Year
  Sex: Male
  Weight: 84 kg

DRUGS (12)
  1. MYFORTIC [Suspect]
     Indication: IMMUNOSUPPRESSION
     Dosage: 720 MG
     Route: 048
     Dates: start: 20090916, end: 20091006
  2. SIMVASTATIN [Concomitant]
     Indication: HYPERCHOLESTEROLAEMIA
     Dosage: 80 MG
     Route: 048
  3. NORVASC [Concomitant]
     Indication: HYPERTENSION
     Dosage: 2.5 MG
     Route: 048
  4. STUDY DRUG [Suspect]
     Indication: KIDNEY TRANSPLANT REJECTION
     Dosage: 10 MG
     Route: 048
     Dates: start: 20091218
  5. MULTI-VITAMINS [Concomitant]
     Indication: VITAMIN SUPPLEMENTATION
     Route: 048
  6. LOVAZA [Concomitant]
     Indication: VITAMIN SUPPLEMENTATION
     Dosage: 1 G
     Route: 048
  7. PREDNISONE [Suspect]
     Indication: IMMUNOSUPPRESSION
     Dosage: 5 MG
     Route: 048
     Dates: start: 20090104
  8. MYFORTIC [Suspect]
     Dosage: 360 MG
     Route: 048
     Dates: start: 20101007, end: 20101223
  9. VITAMIN D [Concomitant]
     Indication: PROPHYLAXIS
     Route: 048
  10. MYFORTIC [Suspect]
     Dosage: 180 MG
     Route: 048
     Dates: start: 20101224
  11. BACTRIM [Concomitant]
     Indication: PROPHYLAXIS
     Route: 048
  12. CALCIUM CARBONATE [Concomitant]
     Indication: PROPHYLAXIS
     Route: 048

REACTIONS (1)
  - SQUAMOUS CELL CARCINOMA OF SKIN [None]
